FAERS Safety Report 4368619-4 (Version None)
Quarter: 2004Q2

REPORT INFORMATION
  Report Type: 
  Country: None (occurrence: None)
  Receive Date: 20040528
  Receipt Date: 20040517
  Transmission Date: 20050107
  Serious: Yes (Death, Hospitalization, Other)
  Sender: FDA-Public Use
  Company Number: 1998151050-FG

PATIENT
  Age: 16 Year
  Sex: Female
  Weight: 36 kg

DRUGS (11)
  1. PROGRAF [Suspect]
     Indication: LIVER TRANSPLANT
     Dosage: ORAL
     Route: 048
     Dates: start: 19980630, end: 19980922
  2. PROGRAF [Suspect]
     Indication: RENAL TRANSPLANT
     Dosage: ORAL
     Route: 048
     Dates: start: 19980630, end: 19980922
  3. PROGRAF [Suspect]
     Indication: LIVER TRANSPLANT
     Dosage: ORAL
     Route: 048
     Dates: start: 19980923, end: 19981012
  4. PROGRAF [Suspect]
     Indication: RENAL TRANSPLANT
     Dosage: ORAL
     Route: 048
     Dates: start: 19980923, end: 19981012
  5. PROGRAF [Suspect]
     Indication: LIVER TRANSPLANT
     Dosage: ORAL
     Route: 048
     Dates: start: 19981013
  6. PROGRAF [Suspect]
     Indication: RENAL TRANSPLANT
     Dosage: ORAL
     Route: 048
     Dates: start: 19981013
  7. PREDNISONE [Concomitant]
  8. AZATHIOPRINE [Concomitant]
  9. CYCLOSPORINE [Concomitant]
  10. SIMULECT [Concomitant]
  11. ACYCLOVIR [Concomitant]

REACTIONS (9)
  - B-CELL LYMPHOMA [None]
  - EPSTEIN-BARR VIRUS INFECTION [None]
  - HEPATIC NEOPLASM [None]
  - HYPOGAMMAGLOBULINAEMIA [None]
  - KIDNEY TRANSPLANT REJECTION [None]
  - LIVER TRANSPLANT REJECTION [None]
  - LYMPHOMA [None]
  - LYMPHOPROLIFERATIVE DISORDER [None]
  - SEPSIS [None]
